FAERS Safety Report 8011042-1 (Version None)
Quarter: 2011Q4

REPORT INFORMATION
  Report Type: 
  Country: None (occurrence: None)
  Receive Date: 20111228
  Receipt Date: 20111219
  Transmission Date: 20120403
  Serious: Yes (Other)
  Sender: FDA-Public Use
  Company Number: GB-ELI_LILLY_AND_COMPANY-GB201112005038

PATIENT
  Age: 50 Year
  Sex: Male

DRUGS (4)
  1. ZYPREXA [Suspect]
     Dosage: 20 MG, UNK
     Route: 048
  2. DIHYDROCODEINE BITARTRATE INJ [Concomitant]
     Dosage: UNK, PRN
  3. FLUTICASONE PROPIONATE/SALMETEROL [Concomitant]
     Route: 055
  4. CARBAMAZEPINE [Concomitant]
     Dosage: 200 MG, BID
     Route: 048

REACTIONS (2)
  - PITUITARY TUMOUR BENIGN [None]
  - BLOOD PROLACTIN INCREASED [None]
